FAERS Safety Report 9521797 (Version 2)
Quarter: 2013Q4

REPORT INFORMATION
  Report Type: Spontaneous
  Country: GB (occurrence: GB)
  Receive Date: 20130913
  Receipt Date: 20131202
  Transmission Date: 20140711
  Serious: Yes (Death)
  Sender: FDA-Public Use
  Company Number: GB-009507513-1309GBR005018

PATIENT
  Age: 66 Year
  Sex: Female

DRUGS (4)
  1. DEXAMETHASONE TABLETS BP 2.0MG [Suspect]
     Indication: SUPERIOR VENA CAVA SYNDROME
     Dosage: 8 MG, UNK
     Route: 048
     Dates: start: 20120521, end: 20120621
  2. DEMECLOCYCLINE [Concomitant]
  3. LANSOPRAZOLE [Concomitant]
  4. SPIRONOLACTONE [Concomitant]

REACTIONS (1)
  - Intestinal perforation [Fatal]
